FAERS Safety Report 12283620 (Version 1)
Quarter: 2016Q2

REPORT INFORMATION
  Report Type: Spontaneous
  Country: CN (occurrence: CN)
  Receive Date: 20160419
  Receipt Date: 20160419
  Transmission Date: 20160815
  Serious: Yes (Hospitalization)
  Sender: FDA-Public Use
  Company Number: CN-B.I. PHARMACEUTICALS,INC./RIDGEFIELD-2016-BI-24043DE

PATIENT
  Age: 69 Year
  Sex: Male
  Weight: 60 kg

DRUGS (3)
  1. TAMSULOSINA [Suspect]
     Active Substance: TAMSULOSIN HYDROCHLORIDE
     Indication: ERECTILE DYSFUNCTION
  2. TAMSULOSINA [Suspect]
     Active Substance: TAMSULOSIN HYDROCHLORIDE
     Indication: BENIGN PROSTATIC HYPERPLASIA
     Route: 048
     Dates: start: 20150331, end: 20150602
  3. GINKGO BILOBA LEAF [Concomitant]
     Indication: PROPHYLAXIS
     Route: 065
     Dates: start: 2014

REACTIONS (3)
  - Colon adenoma [Recovered/Resolved]
  - Melanosis coli [Recovered/Resolved]
  - Large intestine benign neoplasm [Recovered/Resolved]

NARRATIVE: CASE EVENT DATE: 20150603
